FAERS Safety Report 9608206 (Version 2)
Quarter: 2013Q4

REPORT INFORMATION
  Report Type: Spontaneous
  Country: US (occurrence: US)
  Receive Date: 20131009
  Receipt Date: 20131009
  Transmission Date: 20140711
  Serious: No
  Sender: FDA-Public Use
  Company Number: US-PURDUE-USA-2012-0093105

PATIENT
  Age: 56 Year
  Sex: Male
  Weight: 81.63 kg

DRUGS (3)
  1. BUTRANS [Suspect]
     Indication: ARTHRALGIA
     Dosage: 20 MCG, UNK
     Route: 062
     Dates: start: 20120822, end: 20120920
  2. BUTRANS [Suspect]
     Indication: ARTHRITIS
  3. ULTRAM [Concomitant]
     Indication: PAIN
     Dosage: 100 MG, Q6H
     Route: 048

REACTIONS (1)
  - Application site rash [Recovered/Resolved]
